FAERS Safety Report 17736217 (Version 1)
Quarter: 2020Q2

REPORT INFORMATION
  Report Type: Spontaneous
  Country: US (occurrence: US)
  Receive Date: 20200501
  Receipt Date: 20200501
  Transmission Date: 20200714
  Serious: No
  Sender: FDA-Public Use
  Company Number: US-RADIUS HEALTH INC.-2020US000740

PATIENT
  Age: 72 Year
  Sex: Female
  Weight: 47.62 kg

DRUGS (2)
  1. TYMLOS [Suspect]
     Active Substance: ABALOPARATIDE
     Dosage: 40 MCG, QD
     Route: 058
     Dates: start: 202001
  2. TYMLOS [Suspect]
     Active Substance: ABALOPARATIDE
     Indication: OSTEOPOROSIS POSTMENOPAUSAL
     Dosage: 80 MCG, QD
     Route: 058
     Dates: start: 20191119

REACTIONS (8)
  - Off label use [Not Recovered/Not Resolved]
  - Palpitations [Not Recovered/Not Resolved]
  - Flushing [Not Recovered/Not Resolved]
  - Headache [Not Recovered/Not Resolved]
  - Product storage error [Unknown]
  - Hypercalcaemia [Unknown]
  - Dizziness [Not Recovered/Not Resolved]
  - Incorrect product administration duration [Unknown]

NARRATIVE: CASE EVENT DATE: 20191119
